FAERS Safety Report 10968012 (Version 1)
Quarter: 2015Q1

REPORT INFORMATION
  Report Type: Spontaneous
  Country: US (occurrence: US)
  Receive Date: 20150330
  Receipt Date: 20150330
  Transmission Date: 20150721
  Serious: Yes (Other)
  Sender: FDA-Public Use
  Company Number: US-TEVA-550355USA

PATIENT

DRUGS (7)
  1. DOXORUBICIN [Suspect]
     Active Substance: DOXORUBICIN
     Indication: EWING^S SARCOMA
     Dosage: 37.5MG/M2/DAY FOR 2 DAY
     Route: 065
  2. MESNA. [Concomitant]
     Active Substance: MESNA
     Route: 042
  3. CYCLOPHOSPHAMIDE. [Suspect]
     Active Substance: CYCLOPHOSPHAMIDE
     Indication: EWING^S SARCOMA
     Dosage: 2100MG/M2/DAY FOR 2 DAY
     Route: 065
  4. DEXRAZOXANE. [Concomitant]
     Active Substance: DEXRAZOXANE
     Dosage: 375 MG/M2/DOSE
     Route: 065
  5. ETOPOSIDE. [Suspect]
     Active Substance: ETOPOSIDE
     Indication: EWING^S SARCOMA
     Dosage: 100 MG/M2/DAY FOR 5 DAYS
     Route: 065
  6. VINCRISTINE [Suspect]
     Active Substance: VINCRISTINE
     Indication: EWING^S SARCOMA
     Dosage: 2MG/M2/DAY TO MAXIMUM OF 2MG ON DAY 1
     Route: 065
  7. IFOSFAMIDE. [Suspect]
     Active Substance: IFOSFAMIDE
     Indication: EWING^S SARCOMA
     Dosage: 2800 MG/M2/DAY FOR 5 DAYS
     Route: 065

REACTIONS (1)
  - Cystitis haemorrhagic [Unknown]
